FAERS Safety Report 12799925 (Version 1)
Quarter: 2016Q3

REPORT INFORMATION
  Report Type: Spontaneous
  Country: US (occurrence: US)
  Receive Date: 20160930
  Receipt Date: 20160930
  Transmission Date: 20161109
  Serious: No
  Sender: FDA-Public Use
  Company Number: US-BAYER-2016-183372

PATIENT
  Age: 30 Year
  Sex: Male

DRUGS (1)
  1. CIPRO [Suspect]
     Active Substance: CIPROFLOXACIN HYDROCHLORIDE
     Indication: PRODUCT USED FOR UNKNOWN INDICATION
     Dosage: UNK
     Route: 065
     Dates: end: 20160522

REACTIONS (4)
  - Therapeutic response unexpected [None]
  - Nausea [None]
  - Pre-existing condition improved [None]
  - Vomiting [None]

NARRATIVE: CASE EVENT DATE: 20160522
